FAERS Safety Report 20435756 (Version 1)
Quarter: 2022Q1

REPORT INFORMATION
  Report Type: Spontaneous
  Country: US (occurrence: US)
  Receive Date: 20220207
  Receipt Date: 20220207
  Transmission Date: 20220423
  Serious: No
  Sender: FDA-Public Use
  Company Number: US-HETERO-HET2022US00262

PATIENT

DRUGS (2)
  1. RITONAVIR [Suspect]
     Active Substance: RITONAVIR
     Indication: Product used for unknown indication
     Dosage: EVENING ABOUT 5^O CLOCK
     Route: 065
  2. PREDNISONE [Suspect]
     Active Substance: PREDNISONE
     Indication: Product used for unknown indication
     Dosage: MORNING OR AFTERNOON ABOUT 2
     Route: 065

REACTIONS (4)
  - Feeling abnormal [Unknown]
  - Headache [Unknown]
  - Palpitations [Unknown]
  - Hypertension [Unknown]
